FAERS Safety Report 13177792 (Version 1)
Quarter: 2017Q1

REPORT INFORMATION
  Report Type: Spontaneous
  Country: GB (occurrence: GB)
  Receive Date: 20170201
  Receipt Date: 20170201
  Transmission Date: 20170428
  Serious: Yes (Other)
  Sender: FDA-Public Use
  Company Number: GB-UCBSA-2017003353

PATIENT
  Age: 82 Year
  Sex: Female
  Weight: 80 kg

DRUGS (5)
  1. ASPIRIN. [Concomitant]
     Active Substance: ASPIRIN
  2. KEPPRA [Suspect]
     Active Substance: LEVETIRACETAM
     Indication: TRANSIENT ISCHAEMIC ATTACK
     Dosage: 250 MG, 2X/DAY (BID)
     Route: 048
     Dates: start: 20161025
  3. QUININE SULFATE. [Concomitant]
     Active Substance: QUININE SULFATE
  4. RAMIPRIL. [Concomitant]
     Active Substance: RAMIPRIL
  5. ALLOPURINOL. [Concomitant]
     Active Substance: ALLOPURINOL

REACTIONS (3)
  - Eczema [Not Recovered/Not Resolved]
  - Papule [Not Recovered/Not Resolved]
  - Pruritus [Not Recovered/Not Resolved]

NARRATIVE: CASE EVENT DATE: 20161117
